FAERS Safety Report 6079778-X (Version None)
Quarter: 2009Q1

REPORT INFORMATION
  Report Type: 
  Country: None (occurrence: None)
  Receive Date: 20090212
  Receipt Date: 20090203
  Transmission Date: 20090719
  Serious: Yes (Other)
  Sender: FDA-Public Use
  Company Number: 1000003881

PATIENT

DRUGS (6)
  1. ESCITALOPRAM [Suspect]
     Dosage: TRANSPLACENTAL
     Route: 064
     Dates: start: 20080101, end: 20080426
  2. FLOVENT (FLUTICASONE PROPIONATE (FLUTICASONE PROPIONATE) [Concomitant]
  3. SALBUTAMOL (SALBUTAMOL) (SALBUTAMOL) [Concomitant]
  4. ADVAIR HFA [Concomitant]
  5. MULTI-VITAMINS [Concomitant]
  6. ZOLOFT [Concomitant]

REACTIONS (5)
  - DRUG EXPOSURE DURING PREGNANCY [None]
  - DYSPNOEA [None]
  - INFECTION [None]
  - MATERNAL DRUGS AFFECTING FOETUS [None]
  - NEONATAL TACHYPNOEA [None]
